FAERS Safety Report 6439646-8 (Version None)
Quarter: 2009Q4

REPORT INFORMATION
  Report Type: 
  Country: None (occurrence: None)
  Receive Date: 20091112
  Receipt Date: 20091112
  Transmission Date: 20100525
  Serious: Yes (Other)
  Sender: FDA-Public Use
  Company Number: None

PATIENT

DRUGS (2)
  1. CEFAZOLIN [Suspect]
     Indication: BACTERIAL INFECTION
     Dosage: CONTINUOUS
  2. AMPICILLIN SODIUM [Suspect]
     Dosage: CONTINUOUS

REACTIONS (2)
  - MEDICATION ERROR [None]
  - PRODUCT LABEL CONFUSION [None]
